FAERS Safety Report 20291922 (Version 7)
Quarter: 2023Q1

REPORT INFORMATION
  Report Type: Spontaneous
  Country: US (occurrence: US)
  Receive Date: 20220104
  Receipt Date: 20230208
  Transmission Date: 20230418
  Serious: Yes (Other)
  Sender: FDA-Public Use
  Company Number: US-PFIZER INC-202101103206

PATIENT
  Age: 62 Year
  Sex: Female

DRUGS (1)
  1. XELJANZ XR [Suspect]
     Active Substance: TOFACITINIB CITRATE
     Indication: Rheumatoid arthritis
     Dosage: 11 MG, DAILY
     Route: 048
     Dates: start: 202110

REACTIONS (8)
  - Choking [Unknown]
  - Vomiting [Unknown]
  - Gait disturbance [Unknown]
  - Contusion [Unknown]
  - Therapeutic product effect incomplete [Unknown]
  - Depressed mood [Unknown]
  - Discouragement [Unknown]
  - Condition aggravated [Unknown]

NARRATIVE: CASE EVENT DATE: 20211201
